FAERS Safety Report 21547171 (Version 1)
Quarter: 2022Q4

REPORT INFORMATION
  Report Type: Spontaneous
  Country: US (occurrence: US)
  Receive Date: 20221103
  Receipt Date: 20221103
  Transmission Date: 20230113
  Serious: Yes (Life-Threatening, Hospitalization, Other)
  Sender: FDA-Public Use
  Company Number: US-MLMSERVICE-20221018-3866316-1

PATIENT
  Age: 17 Year
  Sex: Female
  Weight: 61.4 kg

DRUGS (1)
  1. AMLODIPINE [Suspect]
     Active Substance: AMLODIPINE BESYLATE
     Dosage: 740MG BASED ON PILL COUNT
     Route: 048

REACTIONS (9)
  - Hypoxia [Recovered/Resolved]
  - Intentional overdose [Unknown]
  - Cardiac arrest [Recovered/Resolved]
  - Encephalopathy [Recovered/Resolved]
  - Toxicity to various agents [Unknown]
  - Acute kidney injury [Recovered/Resolved]
  - Vasoplegia syndrome [Recovered/Resolved]
  - Lactic acidosis [Recovered/Resolved]
  - Brain injury [Unknown]
